FAERS Safety Report 16811343 (Version 3)
Quarter: 2020Q1

REPORT INFORMATION
  Report Type: Spontaneous
  Country: JP (occurrence: JP)
  Receive Date: 20190916
  Receipt Date: 20200218
  Transmission Date: 20200409
  Serious: Yes (Other)
  Sender: FDA-Public Use
  Company Number: JP-ROCHE-2405587

PATIENT
  Age: 57 Year
  Sex: Male
  Weight: 59 kg

DRUGS (3)
  1. LUCENTIS [Suspect]
     Active Substance: RANIBIZUMAB
     Route: 050
     Dates: start: 20190418, end: 20190418
  2. LUCENTIS [Suspect]
     Active Substance: RANIBIZUMAB
     Indication: DIABETIC RETINAL OEDEMA
     Route: 050
     Dates: start: 20190110, end: 20190110
  3. LUCENTIS [Suspect]
     Active Substance: RANIBIZUMAB
     Route: 050
     Dates: start: 20190221, end: 20190221

REACTIONS (4)
  - Cerebral microhaemorrhage [Unknown]
  - Hypoacusis [Unknown]
  - Diabetic retinal oedema [Unknown]
  - Retinal vein occlusion [Recovered/Resolved]

NARRATIVE: CASE EVENT DATE: 201907
